FAERS Safety Report 8047120-0 (Version None)
Quarter: 2012Q1

REPORT INFORMATION
  Report Type: 
  Country: None (occurrence: None)
  Receive Date: 20120116
  Receipt Date: 20120112
  Transmission Date: 20120608
  Serious: Yes (Hospitalization)
  Sender: FDA-Public Use
  Company Number: CH-BAYER-2012-000204

PATIENT
  Sex: Male

DRUGS (3)
  1. FLAGYL [Concomitant]
     Dosage: 1560 MG DAILY
     Route: 042
     Dates: start: 20111230, end: 20120109
  2. SORAFENIB (RAF KINASE INHIBITOR) [Suspect]
     Indication: RECTAL CANCER
     Dosage: DAILY DOSE 400 MG
     Route: 048
     Dates: start: 20111128, end: 20111215
  3. CAPECITABINE [Suspect]
     Indication: RECTAL CANCER
     Dosage: DAILY DOSE 3300 MG
     Route: 048
     Dates: start: 20111128, end: 20111227

REACTIONS (3)
  - SUBILEUS [None]
  - GASTROINTESTINAL PAIN [None]
  - DIARRHOEA [None]
